FAERS Safety Report 12121210 (Version 1)
Quarter: 2016Q1

REPORT INFORMATION
  Report Type: Spontaneous
  Country: US (occurrence: US)
  Receive Date: 20160226
  Receipt Date: 20160226
  Transmission Date: 20160526
  Serious: No
  Sender: FDA-Public Use
  Company Number: US-SUPERNUS PHARMACEUTICALS, INC.-2015SUP00126

PATIENT
  Sex: Female

DRUGS (2)
  1. TROKENDI XR [Suspect]
     Active Substance: TOPIRAMATE
     Indication: SEIZURE
     Dosage: 2 CAPSULES, 1X/DAY
     Dates: start: 20151103
  2. TROKENDI XR [Suspect]
     Active Substance: TOPIRAMATE
     Indication: BRAIN TUMOUR OPERATION

REACTIONS (3)
  - Arthralgia [Unknown]
  - Tinnitus [Unknown]
  - Dyskinesia [Unknown]

NARRATIVE: CASE EVENT DATE: 201511
